FAERS Safety Report 10276188 (Version 2)
Quarter: 2014Q3

REPORT INFORMATION
  Report Type: Report from Study
  Country: BR (occurrence: BR)
  Receive Date: 20140703
  Receipt Date: 20140703
  Transmission Date: 20150326
  Serious: Yes (Hospitalization, Other)
  Sender: FDA-Public Use
  Company Number: BR-ABBVIE-10P-020-0647993-00

PATIENT
  Age: 60 Year
  Sex: Female
  Weight: 64.8 kg

DRUGS (14)
  1. CALCORT [Concomitant]
     Active Substance: DEFLAZACORT
     Indication: ARTHRITIS
  2. MICARDIS AMLO [Concomitant]
     Active Substance: AMLODIPINE BESYLATE\TELMISARTAN
     Indication: BLOOD PRESSURE ABNORMAL
     Dosage: 80MG/12.5MG
     Route: 048
     Dates: start: 2010
  3. TIBOLONE [Concomitant]
     Active Substance: TIBOLONE
     Indication: HORMONE REPLACEMENT THERAPY
     Route: 048
  4. DOMPERIDONE [Concomitant]
     Active Substance: DOMPERIDONE
     Indication: GASTROINTESTINAL DISORDER
     Route: 048
     Dates: start: 2014
  5. ARCOXIA [Concomitant]
     Active Substance: ETORICOXIB
     Indication: PRODUCT USED FOR UNKNOWN INDICATION
  6. TRIMEBUTINE [Concomitant]
     Active Substance: TRIMEBUTINE
     Indication: DYSPEPSIA
     Route: 048
  7. LEVOID [Concomitant]
     Active Substance: LEVOTHYROXINE
     Indication: THYROID DISORDER
     Route: 048
     Dates: start: 201108
  8. LEVOID [Concomitant]
     Active Substance: LEVOTHYROXINE
     Indication: THYROID DISORDER
     Route: 048
     Dates: start: 201108
  9. ROSUVASTATIN [Concomitant]
     Active Substance: ROSUVASTATIN
     Indication: BLOOD CHOLESTEROL
     Route: 048
     Dates: start: 201405
  10. HUMIRA [Suspect]
     Active Substance: ADALIMUMAB
     Indication: RHEUMATOID ARTHRITIS
     Route: 058
     Dates: start: 2008
  11. CLOXAZOLAM [Concomitant]
     Active Substance: CLOXAZOLAM
     Indication: STRESS
     Route: 048
  12. DEPURA [Concomitant]
     Active Substance: CHOLECALCIFEROL
     Indication: MALABSORPTION
     Route: 048
     Dates: start: 2010
  13. CALCORT [Concomitant]
     Active Substance: DEFLAZACORT
     Indication: RHEUMATOID ARTHRITIS
     Route: 048
  14. DESIDRAT [Concomitant]
     Indication: GASTROINTESTINAL DISORDER
     Route: 048
     Dates: start: 201209

REACTIONS (14)
  - Hepatitis [Recovered/Resolved]
  - Thyroid neoplasm [Recovered/Resolved]
  - Vomiting [Unknown]
  - Anxiety [Unknown]
  - Abdominal pain [Not Recovered/Not Resolved]
  - Blood cholesterol abnormal [Not Recovered/Not Resolved]
  - Meniscal degeneration [Not Recovered/Not Resolved]
  - Fistula [Not Recovered/Not Resolved]
  - Platelet count decreased [Recovered/Resolved]
  - Joint effusion [Not Recovered/Not Resolved]
  - Diverticulitis [Recovering/Resolving]
  - Dengue fever [Recovered/Resolved]
  - Dry eye [Not Recovered/Not Resolved]
  - Arthritis [Not Recovered/Not Resolved]

NARRATIVE: CASE EVENT DATE: 20080801
